FAERS Safety Report 4532924-9 (Version None)
Quarter: 2004Q4

REPORT INFORMATION
  Report Type: 
  Country: None (occurrence: None)
  Receive Date: 20041221
  Receipt Date: 20041201
  Transmission Date: 20050328
  Serious: Yes (Death, Other)
  Sender: FDA-Public Use
  Company Number: PHNR2004AU01680

PATIENT
  Age: 36 Year
  Sex: Male

DRUGS (4)
  1. CLOZARIL [Suspect]
     Indication: SCHIZOPHRENIA
     Dosage: 25 - 725 MG/DAY
     Dates: start: 20040611
  2. DESMOPRESSIN [Concomitant]
     Dosage: 2 TABLETS/DAY
  3. DIAFORMIN [Concomitant]
     Dosage: 1 TABLET TWICE DAILY
  4. JEZIL [Concomitant]

REACTIONS (4)
  - BLOOD CHOLESTEROL INCREASED [None]
  - DIABETES MELLITUS NON-INSULIN-DEPENDENT [None]
  - MYOCARDIAL INFARCTION [None]
  - OBESITY [None]
